FAERS Safety Report 22596344 (Version 1)
Quarter: 2023Q2

REPORT INFORMATION
  Report Type: Spontaneous
  Country: US (occurrence: US)
  Receive Date: 20230613
  Receipt Date: 20230613
  Transmission Date: 20230722
  Serious: No
  Sender: FDA-Public Use
  Company Number: US-MYLANLABS-2023M1049749

PATIENT
  Sex: Female
  Weight: 58.96 kg

DRUGS (1)
  1. ESTRADIOL TRANSDERMAL SYSTEM [Suspect]
     Active Substance: ESTRADIOL
     Indication: Hormone replacement therapy
     Dosage: 0.037 MILLIGRAM, QD (TWICE A WEEK)
     Route: 062
     Dates: start: 2018

REACTIONS (2)
  - Product adhesion issue [Unknown]
  - Device difficult to use [Unknown]
